FAERS Safety Report 14091882 (Version 1)
Quarter: 2017Q4

REPORT INFORMATION
  Report Type: Spontaneous
  Country: US (occurrence: None)
  Receive Date: 20171014
  Receipt Date: 20171014
  Transmission Date: 20180321
  Serious: Yes (Disabling)
  Sender: FDA-Public Use
  Company Number: None

PATIENT
  Age: 87 Year
  Sex: Male
  Weight: 97.52 kg

DRUGS (6)
  1. DICLOFENAC SODIUM OPHTHALMIC SOLUTION 0.17% (5ML) [Suspect]
     Active Substance: DICLOFENAC SODIUM
     Indication: ANALGESIC INTERVENTION SUPPORTIVE THERAPY
     Dosage: DOSE - 1 GTT/ 2X DAY?ADM ROUTE - DROP INTO EYE (RT.)
     Route: 047
     Dates: start: 201707, end: 201709
  2. AVAPRO [Concomitant]
     Active Substance: IRBESARTAN
  3. VITAMINS [Concomitant]
     Active Substance: VITAMINS
  4. LASIX [Concomitant]
     Active Substance: FUROSEMIDE
  5. ELIQUIS [Concomitant]
     Active Substance: APIXABAN
  6. CALCIUM [Concomitant]
     Active Substance: CALCIUM

REACTIONS (7)
  - Loss of personal independence in daily activities [None]
  - Laceration [None]
  - Keratitis [None]
  - Balance disorder [None]
  - Vision blurred [None]
  - Limb injury [None]
  - Gait inability [None]

NARRATIVE: CASE EVENT DATE: 20170901
